FAERS Safety Report 26019770 (Version 1)
Quarter: 2025Q4

REPORT INFORMATION
  Report Type: Spontaneous
  Country: US (occurrence: US)
  Receive Date: 20251110
  Receipt Date: 20251110
  Transmission Date: 20260118
  Serious: No
  Sender: GALPHARM INTERNATIONAL
  Company Number: US-PERRIGO-24US010230

PATIENT
  Age: 79 Year
  Sex: Female
  Weight: 46.259 kg

DRUGS (8)
  1. POLYETHYLENE GLYCOL 3350 [Suspect]
     Active Substance: POLYETHYLENE GLYCOL 3350
     Indication: Colonoscopy
     Dosage: 10 OUNCES, EVERY 20 MINUTES
     Route: 048
     Dates: start: 20241028, end: 20241028
  2. MILK OF MAGNESIA [Suspect]
     Active Substance: MAGNESIUM HYDROXIDE
     Indication: Colonoscopy
     Dosage: 30 ML, THREE TIMES
     Route: 048
     Dates: start: 20241028, end: 20241028
  3. CLONAZEPAM [Concomitant]
     Active Substance: CLONAZEPAM
     Indication: Anxiety disorder
     Dosage: UNKNOWN, TID
     Route: 065
     Dates: start: 2009
  4. SULFADIAZINE\SULFAMETHOXAZOLE\TRIMETHOPRIM [Concomitant]
     Active Substance: SULFADIAZINE\SULFAMETHOXAZOLE\TRIMETHOPRIM
     Indication: Bladder disorder
     Dosage: 800 MG, BID
     Route: 065
     Dates: start: 1974
  5. POTASSIUM CHLORIDE\RIBOFLAVIN 5^-PHOSPHATE SODIUM [Concomitant]
     Active Substance: POTASSIUM CHLORIDE\RIBOFLAVIN 5^-PHOSPHATE SODIUM
     Indication: Supplementation therapy
     Dosage: 40 MG, QD
     Route: 065
     Dates: start: 2017
  6. FUROSEMIDE [Concomitant]
     Active Substance: FUROSEMIDE
     Indication: Bladder disorder
     Dosage: UNKNOWN, QD
     Route: 065
     Dates: start: 2009
  7. PANTOPRAZOLE SODIUM [Concomitant]
     Active Substance: PANTOPRAZOLE SODIUM
     Indication: Hernia
     Dosage: 40 MG, BID
     Route: 065
     Dates: start: 2021
  8. CHLORZOXAZONE [Concomitant]
     Active Substance: CHLORZOXAZONE
     Indication: Hernia
     Dosage: 500 MG, TID
     Route: 065
     Dates: start: 2021

REACTIONS (9)
  - Pain [Recovered/Resolved]
  - Pain in extremity [Not Recovered/Not Resolved]
  - Heart rate increased [Recovered/Resolved]
  - Asthenia [Not Recovered/Not Resolved]
  - Gait disturbance [Not Recovered/Not Resolved]
  - Tremor [Not Recovered/Not Resolved]
  - Diarrhoea [Recovered/Resolved]
  - Off label use [Unknown]
  - Overdose [Unknown]

NARRATIVE: CASE EVENT DATE: 20241028
